FAERS Safety Report 6756874-2 (Version None)
Quarter: 2010Q2

REPORT INFORMATION
  Report Type: 
  Country: None (occurrence: None)
  Receive Date: 20100524
  Receipt Date: 20100215
  Transmission Date: 20101027
  Serious: No
  Sender: FDA-Public Use
  Company Number: 006964

PATIENT
  Sex: Female
  Weight: 70.09 kg

DRUGS (8)
  1. CIMZIA [Suspect]
     Indication: RHEUMATOID ARTHRITIS
     Dosage: (400 MG Q 2-WKS SUBCUTANEOUS)
     Route: 058
     Dates: start: 20090801
  2. METHOTREXATE [Concomitant]
  3. LIPITOR [Concomitant]
  4. HYDROCODONE BITARTRATE [Concomitant]
  5. MOBIC [Concomitant]
  6. ASPIRIN CHILDREN [Concomitant]
  7. METOPROLOL [Concomitant]
  8. AMLODIPINE BESYLATE AND VALSARTAN [Concomitant]

REACTIONS (2)
  - HEPATIC ENZYME INCREASED [None]
  - MALAISE [None]
